FAERS Safety Report 12094906 (Version 1)
Quarter: 2016Q1

REPORT INFORMATION
  Report Type: Spontaneous
  Country: US (occurrence: US)
  Receive Date: 20160219
  Receipt Date: 20160219
  Transmission Date: 20160526
  Serious: Yes (Other)
  Sender: FDA-Public Use
  Company Number: US-ASTRAZENECA-2016SE16168

PATIENT
  Sex: Male
  Weight: 74.8 kg

DRUGS (14)
  1. ALBUTEROL 100 IPRAPRO 20MCG [Concomitant]
     Route: 055
  2. MOVANTIK [Suspect]
     Active Substance: NALOXEGOL OXALATE
     Indication: CONSTIPATION
     Route: 048
     Dates: start: 20160203
  3. ASPIRIN. [Concomitant]
     Active Substance: ASPIRIN
     Indication: ANTICOAGULANT THERAPY
     Route: 048
     Dates: start: 2000
  4. CYANOCOBALAMIN. [Concomitant]
     Active Substance: CYANOCOBALAMIN
     Indication: HYPOVITAMINOSIS
     Route: 048
     Dates: start: 2006
  5. HYDROCODONE [Concomitant]
     Active Substance: HYDROCODONE
     Indication: PAIN
     Route: 048
     Dates: start: 2010
  6. METFORMIN HYDROCHLORIDE. [Concomitant]
     Active Substance: METFORMIN HYDROCHLORIDE
     Indication: DIABETES MELLITUS
     Route: 048
     Dates: start: 2000
  7. DIAZEPAM. [Concomitant]
     Active Substance: DIAZEPAM
     Indication: GASTROINTESTINAL MOTILITY DISORDER
     Route: 048
     Dates: start: 20160103
  8. ATORVASTATIN CALCIUM. [Concomitant]
     Active Substance: ATORVASTATIN CALCIUM
     Indication: BLOOD CHOLESTEROL ABNORMAL
     Route: 048
     Dates: start: 2006
  9. CARBOXYMETHYL CELLULOSE [Concomitant]
     Indication: DRY EYE
     Route: 047
  10. METHOCARBAMOL. [Concomitant]
     Active Substance: METHOCARBAMOL
     Indication: MUSCLE SPASMS
     Route: 048
     Dates: start: 2013
  11. MELOXICAM. [Concomitant]
     Active Substance: MELOXICAM
     Route: 048
     Dates: start: 2014
  12. LOSARTAN. [Concomitant]
     Active Substance: LOSARTAN
     Indication: BLOOD PRESSURE ABNORMAL
     Route: 048
     Dates: start: 1995
  13. AZITHROMYCIN ANHYDROUS. [Concomitant]
     Active Substance: AZITHROMYCIN ANHYDROUS
     Route: 048
     Dates: start: 2000
  14. FORMOTEROL FUMARATE DIHYDRATE [Concomitant]
     Active Substance: FORMOTEROL FUMARATE DIHYDRATE
     Route: 055

REACTIONS (12)
  - Myalgia [Unknown]
  - Diabetic foot [Unknown]
  - Sleep disorder due to general medical condition, insomnia type [Unknown]
  - Dry eye [Unknown]
  - Mood altered [Unknown]
  - Loss of consciousness [Unknown]
  - Bone disorder [Unknown]
  - Drug ineffective [Unknown]
  - Gait disturbance [Unknown]
  - Eyelid pain [Unknown]
  - Muscle spasms [Recovered/Resolved]
  - Pain [Recovered/Resolved]
